FAERS Safety Report 9251704 (Version 1)
Quarter: 2013Q1

REPORT INFORMATION
  Report Type: Spontaneous
  Country: US (occurrence: None)
  Receive Date: 20130305
  Receipt Date: 20130305
  Transmission Date: 20140127
  Serious: Yes (Hospitalization)
  Sender: FDA-Public Use
  Company Number: 163-21880-12040814

PATIENT
  Age: 46 Year
  Sex: Female
  Weight: 55.34 kg

DRUGS (1)
  1. REVLIMID [Suspect]
     Indication: HAEMATOPOIETIC NEOPLASM
     Dosage: 5MG, EVERY MONDAY AND FRIDAY, PO
     Route: 048
     Dates: start: 20090123

REACTIONS (3)
  - Full blood count decreased [None]
  - Asthenia [None]
  - Malaise [None]
